FAERS Safety Report 25825400 (Version 1)
Quarter: 2025Q3

REPORT INFORMATION
  Report Type: Spontaneous
  Country: US (occurrence: US)
  Receive Date: 20250919
  Receipt Date: 20250919
  Transmission Date: 20251021
  Serious: Yes (Hospitalization)
  Sender: AMGEN
  Company Number: US-AMGEN-USASP2025182243

PATIENT
  Age: 14 Year
  Sex: Male

DRUGS (6)
  1. XGEVA [Suspect]
     Active Substance: DENOSUMAB
     Indication: Giant cell epulis
     Route: 065
  2. ZOLEDRONIC ACID [Suspect]
     Active Substance: ZOLEDRONIC ACID
     Indication: Hypercalcaemia
     Route: 065
  3. ZOLEDRONIC ACID [Suspect]
     Active Substance: ZOLEDRONIC ACID
     Route: 065
  4. ZOLEDRONIC ACID [Suspect]
     Active Substance: ZOLEDRONIC ACID
     Route: 065
  5. CALCITONIN [Concomitant]
     Active Substance: CALCITONIN
     Dosage: 2 UNITS/KG Q12H
     Route: 058
  6. CALCITONIN [Concomitant]
     Active Substance: CALCITONIN
     Dosage: 4 UNITS/KG Q12H
     Route: 058

REACTIONS (6)
  - Hypercalcaemia [Recovered/Resolved]
  - Acute kidney injury [Unknown]
  - Drug effective for unapproved indication [Unknown]
  - Off label use [Unknown]
  - Influenza like illness [Unknown]
  - Product dose omission issue [Unknown]
